FAERS Safety Report 9772899 (Version 1)
Quarter: 2013Q4

REPORT INFORMATION
  Report Type: Spontaneous
  Country: DE (occurrence: DE)
  Receive Date: 20131219
  Receipt Date: 20131219
  Transmission Date: 20140711
  Serious: Yes (Other)
  Sender: FDA-Public Use
  Company Number: DE-TEVA-451195GER

PATIENT
  Sex: Female

DRUGS (3)
  1. COPAXONE [Suspect]
     Indication: MULTIPLE SCLEROSIS
     Route: 058
     Dates: start: 20120419
  2. SERTRALINE [Suspect]
     Indication: DEPRESSION
     Dosage: 100 MILLIGRAM DAILY; 100 MG/DAY
     Dates: start: 20121210
  3. LAMOTRIGINE [Suspect]
     Indication: GRAND MAL CONVULSION
     Dosage: 500 MILLIGRAM DAILY; 500 MG/DAY
     Dates: start: 20120418

REACTIONS (1)
  - Abortion early [Unknown]
